FAERS Safety Report 20741273 (Version 1)
Quarter: 2022Q2

REPORT INFORMATION
  Report Type: Spontaneous
  Country: US (occurrence: US)
  Receive Date: 20220422
  Receipt Date: 20220422
  Transmission Date: 20220721
  Serious: No
  Sender: FDA-Public Use
  Company Number: US-PFIZER INC-202200591245

PATIENT
  Age: 54 Year
  Sex: Male
  Weight: 78.93 kg

DRUGS (1)
  1. PAXLOVID [Suspect]
     Active Substance: NIRMATRELVIR\RITONAVIR
     Indication: COVID-19 treatment
     Dosage: UNK

REACTIONS (10)
  - Illness [Unknown]
  - Throat irritation [Unknown]
  - Depressed mood [Unknown]
  - Dizziness [Unknown]
  - Hypertension [Unknown]
  - Myalgia [Unknown]
  - Asthenia [Unknown]
  - Dysgeusia [Unknown]
  - Diarrhoea [Unknown]
  - Dehydration [Unknown]

NARRATIVE: CASE EVENT DATE: 20220418
